FAERS Safety Report 12855347 (Version 2)
Quarter: 2016Q4

REPORT INFORMATION
  Report Type: Report from Study
  Country: DE (occurrence: DE)
  Receive Date: 20161017
  Receipt Date: 20161128
  Transmission Date: 20170207
  Serious: Yes (Hospitalization)
  Sender: FDA-Public Use
  Company Number: DE-B.I. PHARMACEUTICALS,INC./RIDGEFIELD-2016-BI-36081BI

PATIENT
  Age: 65 Year
  Sex: Male
  Weight: 93 kg

DRUGS (7)
  1. SIMVAHEXAL [Concomitant]
     Active Substance: SIMVASTATIN
     Indication: HYPERCHOLESTEROLAEMIA
     Route: 048
  2. BLINDED DABIGATRAN [Suspect]
     Active Substance: DABIGATRAN ETEXILATE
     Indication: CEREBROVASCULAR ACCIDENT
     Route: 048
     Dates: start: 20150528, end: 20161004
  3. METOHEXAL SUCC [Concomitant]
     Active Substance: METOPROLOL SUCCINATE
     Indication: HYPERTENSION
     Route: 048
  4. XIGUDO [Concomitant]
     Indication: TYPE 2 DIABETES MELLITUS
     Dosage: STRENGTH: 5/1000; 1.5 TBL
     Route: 048
  5. RAMIPRIL. [Concomitant]
     Active Substance: RAMIPRIL
     Indication: HYPERTENSION
     Route: 048
  6. AMARYL [Concomitant]
     Active Substance: GLIMEPIRIDE
     Indication: TYPE 2 DIABETES MELLITUS
     Route: 048
  7. L THYROXIN [Concomitant]
     Active Substance: LEVOTHYROXINE SODIUM
     Indication: HYPOTHYROIDISM
     Route: 048

REACTIONS (4)
  - Vertigo [Recovered/Resolved]
  - Coronary artery disease [Recovered/Resolved]
  - Coronary artery disease [Recovered/Resolved]
  - Blood pressure increased [Recovered/Resolved]

NARRATIVE: CASE EVENT DATE: 20160523
